FAERS Safety Report 12094385 (Version 1)
Quarter: 2016Q1

REPORT INFORMATION
  Report Type: Spontaneous
  Country: US (occurrence: US)
  Receive Date: 20160219
  Receipt Date: 20160219
  Transmission Date: 20160526
  Serious: Yes (Other)
  Sender: FDA-Public Use
  Company Number: US-TEVA-635767USA

PATIENT
  Sex: Female

DRUGS (1)
  1. ZECUITY [Suspect]
     Active Substance: SUMATRIPTAN SUCCINATE
     Indication: MIGRAINE
     Dosage: 6.5 MG OVER 4 HOURS
     Route: 062

REACTIONS (5)
  - Application site rash [Unknown]
  - Application site erythema [Unknown]
  - Application site burn [Unknown]
  - Application site scar [Unknown]
  - Application site pain [Unknown]

NARRATIVE: CASE EVENT DATE: 20160212
